FAERS Safety Report 7946229-7 (Version None)
Quarter: 2011Q4

REPORT INFORMATION
  Report Type: 
  Country: None (occurrence: None)
  Receive Date: 20111125
  Receipt Date: 20111114
  Transmission Date: 20120403
  Serious: Yes (Hospitalization)
  Sender: FDA-Public Use
  Company Number: LEO-2011-00866

PATIENT
  Age: 53 Year
  Sex: Male
  Weight: 52 kg

DRUGS (1)
  1. INNOHEP [Suspect]
     Indication: VENA CAVA THROMBOSIS
     Dosage: 0.45 ML, SUBCUTANEOUS
     Route: 058
     Dates: start: 20110801, end: 20111001

REACTIONS (1)
  - PULMONARY EMBOLISM [None]
